FAERS Safety Report 7545613-3 (Version None)
Quarter: 2011Q2

REPORT INFORMATION
  Report Type: 
  Country: None (occurrence: None)
  Receive Date: 20110614
  Receipt Date: 20110609
  Transmission Date: 20111010
  Serious: Yes (Death, Other)
  Sender: FDA-Public Use
  Company Number: US-ASTELLAS-2011US001581

PATIENT
  Sex: Male

DRUGS (9)
  1. ALDACTONE [Concomitant]
     Indication: PRODUCT USED FOR UNKNOWN INDICATION
     Dosage: 250 UNK, UNKNOWN/D
     Route: 065
  2. PRAVACHOL [Concomitant]
     Indication: PRODUCT USED FOR UNKNOWN INDICATION
     Dosage: 20 UNK, UNKNOWN/D
     Route: 065
  3. BENADRYL [Concomitant]
     Indication: PRODUCT USED FOR UNKNOWN INDICATION
     Dosage: 20 UNK, UNKNOWN/D
     Route: 065
  4. PREDNISONE [Concomitant]
     Indication: PRODUCT USED FOR UNKNOWN INDICATION
     Dosage: 2.5 UNK, QOD
     Route: 065
  5. OMEPRAZOLE [Concomitant]
     Indication: PRODUCT USED FOR UNKNOWN INDICATION
     Dosage: 20 UNK, UNKNOWN/D
     Route: 065
  6. LASIX [Concomitant]
     Indication: PRODUCT USED FOR UNKNOWN INDICATION
     Dosage: 40 UNK, UNKNOWN/D
     Route: 065
  7. PROGRAF [Suspect]
     Indication: RENAL AND LIVER TRANSPLANT
     Dosage: 0.5 MG BI-DAILY, 3 MG BI-DAILY
     Route: 048
     Dates: start: 19990517
  8. MAALOX [Concomitant]
     Indication: PRODUCT USED FOR UNKNOWN INDICATION
     Dosage: UNK
     Route: 065
  9. CELLCEPT [Concomitant]
     Indication: PRODUCT USED FOR UNKNOWN INDICATION
     Dosage: 250 UNK, UNKNOWN/D
     Route: 065

REACTIONS (6)
  - LIVER TRANSPLANT REJECTION [None]
  - INFECTION [None]
  - KIDNEY TRANSPLANT REJECTION [None]
  - TREATMENT NONCOMPLIANCE [None]
  - RENAL FAILURE [None]
  - HEPATIC FAILURE [None]
